FAERS Safety Report 10403566 (Version 4)
Quarter: 2014Q3

REPORT INFORMATION
  Report Type: Spontaneous
  Country: US (occurrence: US)
  Receive Date: 20140822
  Receipt Date: 20140925
  Transmission Date: 20150326
  Serious: Yes (Death, Hospitalization, Other)
  Sender: FDA-Public Use
  Company Number: US-GILEAD-2014-0112779

PATIENT
  Age: 59 Year
  Sex: Male
  Weight: 107.3 kg

DRUGS (4)
  1. REMODULIN [Suspect]
     Active Substance: TREPROSTINIL
     Indication: COR PULMONALE CHRONIC
     Dosage: 0.002 ?G/KG, UNK
     Route: 058
     Dates: start: 20140714, end: 20140819
  2. LETAIRIS [Suspect]
     Active Substance: AMBRISENTAN
     Indication: PULMONARY HYPERTENSION
     Dosage: 10 MG, QD
     Route: 065
     Dates: start: 20140711, end: 20140806
  3. SILDENAFIL [Concomitant]
     Active Substance: SILDENAFIL
  4. REVATIO [Concomitant]
     Active Substance: SILDENAFIL CITRATE

REACTIONS (5)
  - Oedema [Unknown]
  - Hypotension [Unknown]
  - Ascites [Unknown]
  - Death [Fatal]
  - Umbilical hernia perforation [Unknown]

NARRATIVE: CASE EVENT DATE: 2014
